FAERS Safety Report 4972981-9 (Version None)
Quarter: 2006Q2

REPORT INFORMATION
  Report Type: 
  Country: None (occurrence: None)
  Receive Date: 20060414
  Receipt Date: 20060411
  Transmission Date: 20061013
  Serious: Yes (Hospitalization)
  Sender: FDA-Public Use
  Company Number: US-GLAXOSMITHKLINE-A0601402A

PATIENT
  Age: 24 Year
  Sex: Female

DRUGS (4)
  1. ZOFRAN [Suspect]
     Indication: HYPEREMESIS GRAVIDARUM
     Dosage: 8MG TWICE PER DAY
     Route: 048
     Dates: start: 20050401
  2. ZOFRAN [Suspect]
     Dosage: 8MG TWICE PER DAY
     Route: 048
     Dates: start: 20050401, end: 20050401
  3. ZOFRAN [Suspect]
     Route: 042
     Dates: start: 20050401, end: 20051001
  4. NO CONCURRENT MEDICATION [Concomitant]

REACTIONS (6)
  - DRUG EXPOSURE DURING PREGNANCY [None]
  - DRUG INEFFECTIVE [None]
  - NAUSEA [None]
  - PHARMACEUTICAL PRODUCT COMPLAINT [None]
  - VOMITING [None]
  - WEIGHT DECREASED [None]
